FAERS Safety Report 5216946-0 (Version None)
Quarter: 2007Q1

REPORT INFORMATION
  Report Type: 
  Country: None (occurrence: None)
  Receive Date: 20070124
  Receipt Date: 20070112
  Transmission Date: 20070707
  Serious: Yes (Hospitalization)
  Sender: FDA-Public Use
  Company Number: BR-JNJFOC-20070103260

PATIENT
  Age: 50 Year
  Sex: Female

DRUGS (6)
  1. HALDOL [Suspect]
     Dosage: 10 DROPS AT ONCE
     Route: 048
  2. HALDOL [Suspect]
     Indication: DRUG USE FOR UNKNOWN INDICATION
     Route: 048
  3. TRAMADOL HCL [Suspect]
     Dosage: 100 MG AT ONCE
  4. TRAMADOL HCL [Suspect]
     Indication: DRUG USE FOR UNKNOWN INDICATION
  5. LEVOPROMAZINE [Suspect]
     Dosage: 30 DROPS AT ONCE
  6. LEVOPROMAZINE [Suspect]
     Indication: DRUG USE FOR UNKNOWN INDICATION

REACTIONS (3)
  - HYPERTENSION [None]
  - SOMNOLENCE [None]
  - SUICIDE ATTEMPT [None]
